FAERS Safety Report 7529797 (Version 5)
Quarter: 2013Q3

REPORT INFORMATION
  Report Type: Spontaneous
  Country: JP (occurrence: JP)
  Receive Date: 20100805
  Receipt Date: 20130717
  Transmission Date: 20140515
  Serious: Yes (Hospitalization, Other)
  Sender: FDA-Public Use
  Company Number: JP-MERCK-1008USA00056

PATIENT
  Age: 11 Year
  Sex: Male

DRUGS (45)
  1. GASTER [Suspect]
     Dosage: 7.5 MG, BID
     Route: 048
     Dates: start: 20100626, end: 20100715
  2. GASTER [Suspect]
     Dosage: 8 MG, BID
     Route: 041
     Dates: start: 20100617, end: 20100626
  3. CEFAZOLIN SODIUM [Suspect]
     Dosage: 500 MG, BID
     Route: 041
     Dates: start: 20100622, end: 20100624
  4. CERCINE [Suspect]
     Dosage: 5 MG, UNK
     Route: 048
     Dates: start: 20100622, end: 20100701
  5. CERCINE [Suspect]
     Dosage: 4 ML, UNK
     Route: 048
     Dates: start: 20100702, end: 20100722
  6. VICCILLIN [Suspect]
     Dosage: 375 MG, QID
     Route: 042
     Dates: start: 20100715, end: 20100716
  7. TAKEPRON [Suspect]
     Dosage: 7.5 MG, BID
     Route: 048
     Dates: start: 20100628, end: 20100728
  8. ROCEPHIN [Suspect]
     Indication: INFECTION
     Dosage: 2000 MG, QD
     Route: 042
     Dates: start: 20100630, end: 20100707
  9. BIOFERMIN R [Suspect]
     Dosage: 1 G, UNK
     Route: 048
     Dates: start: 20100711, end: 20100718
  10. RISPERDAL [Suspect]
     Dosage: 0.3 ML, QD
     Route: 048
     Dates: start: 20100702, end: 20100714
  11. CALONAL [Suspect]
     Indication: PYREXIA
     Dosage: 300 MG, QD
     Route: 048
     Dates: start: 20100627, end: 20100716
  12. PHENOBAL [Suspect]
     Dosage: 50 MG, BID
     Route: 048
     Dates: start: 20100622, end: 20100709
  13. DORMICUM (MIDAZOLAM) [Suspect]
     Dosage: 10 MG, QD
     Route: 042
     Dates: start: 20100617, end: 20100709
  14. CLINDAMYCIN PHOSPHATE [Suspect]
     Dosage: 100 MG, TID
     Route: 042
     Dates: start: 20100708, end: 20100710
  15. PIPERACILLIN SODIUM [Suspect]
     Dosage: 375 MG, QID
     Route: 042
     Dates: start: 20100715, end: 20100716
  16. MORPHINA [Suspect]
     Dosage: 2 MG/KG
     Route: 041
     Dates: start: 20100621, end: 20100709
  17. LASIX (FUROSEMIDE) [Suspect]
     Dosage: 2.5 MG, QID
     Route: 048
     Dates: start: 20100626, end: 20100706
  18. ALDACTONE A [Suspect]
     Dosage: 2.5 MG, QID
     Route: 048
     Dates: start: 20100626, end: 20100706
  19. LACTOBACILLUS CASEI [Suspect]
     Dosage: 500 MG, UNK
     Route: 048
     Dates: start: 20100702, end: 20100709
  20. DEPAS [Suspect]
     Dosage: 1 DF, QD
     Route: 048
     Dates: start: 20100701, end: 20100701
  21. TRICLORYL [Suspect]
     Dosage: 20 ML, QD
     Route: 048
     Dates: start: 20100628, end: 20100705
  22. LAXOBERON [Suspect]
     Dosage: 10 ML, QD
     Route: 048
     Dates: start: 20100620, end: 20100620
  23. OMEPRAL [Suspect]
     Dosage: 7.5 MG, BID
     Route: 041
     Dates: start: 20100716, end: 20100721
  24. HEPARIN [Suspect]
     Dosage: 5IU/KG
     Route: 041
     Dates: start: 20100808, end: 20100812
  25. GLYCEOL (FRUCTOSE (+) GLYCERIN (+) SODIUM CHLORIDE) [Suspect]
     Dosage: 200 ML, UNK
     Route: 041
     Dates: start: 20100617, end: 20100618
  26. DECADRON [Suspect]
     Dosage: 2 MG, UNK
     Route: 041
     Dates: start: 20100617, end: 20100622
  27. ATROPINE SULFATE [Suspect]
     Dosage: 0.5 MG, QD
     Route: 041
     Dates: start: 20100617, end: 20100622
  28. EPINEPHRINE [Suspect]
     Dosage: 10 MG, QD
     Route: 041
     Dates: start: 20100621, end: 20100621
  29. CALCICOL [Suspect]
     Dosage: 10 ML, QD
     Route: 041
     Dates: start: 20100621, end: 20100621
  30. FENTANYL [Suspect]
     Route: 041
     Dates: start: 20100621, end: 20100708
  31. ULTIVA [Suspect]
     Route: 041
     Dates: start: 20100621, end: 20100708
  32. NICARPINE [Suspect]
     Route: 041
     Dates: start: 20100622, end: 20100624
  33. PRECEDEX [Suspect]
     Route: 041
     Dates: start: 20100704, end: 20100705
  34. ROCURONIUM BROMIDE [Suspect]
     Dosage: 50 MG, QD
     Route: 041
     Dates: start: 20100617, end: 20100706
  35. XYLOCAINE [Suspect]
     Dosage: 10 ML, QD
     Route: 041
     Dates: start: 20100621, end: 20100709
  36. PANTOL [Suspect]
     Dosage: 25 MG, BID
     Route: 041
     Dates: start: 20100604, end: 20100705
  37. ATARAX [Suspect]
     Dosage: 25 MG, QD
     Route: 041
     Dates: start: 20100709, end: 20100709
  38. ANHIBA [Suspect]
     Route: 054
     Dates: start: 20100630, end: 20100716
  39. ROPION [Suspect]
     Dosage: 3.5 ML, QD
     Route: 041
     Dates: start: 20100709, end: 20100709
  40. TARIVID (OFLOXACIN) [Suspect]
     Route: 047
     Dates: start: 20100728, end: 20100729
  41. HYALEIN [Suspect]
     Route: 047
     Dates: start: 20100723, end: 20100821
  42. GLYCERIN/GLYCERIN (+) MENTHOL (+) XYLITOL [Suspect]
     Indication: CONSTIPATION
     Route: 054
     Dates: start: 20100621
  43. HEPARIN SODIUM [Suspect]
     Dosage: 2 DF, QD
     Route: 041
     Dates: start: 20100617
  44. MIDAZOLAM [Suspect]
     Dosage: 10 MG, QD
     Route: 042
     Dates: start: 20100621, end: 20100621
  45. BIOFERMIN (BACILLUS SUBTILIS (+) LACTOBACILLUS ACIDOPHILUS (+) STREPTO [Suspect]
     Dosage: 1 G, UNK
     Route: 048
     Dates: start: 20100711, end: 20100718

REACTIONS (3)
  - Drug reaction with eosinophilia and systemic symptoms [Recovered/Resolved]
  - Pyrexia [None]
  - Infection [None]
